FAERS Safety Report 12496761 (Version 2)
Quarter: 2016Q3

REPORT INFORMATION
  Report Type: Report from Study
  Country: FR (occurrence: FR)
  Receive Date: 20160624
  Receipt Date: 20160708
  Transmission Date: 20161109
  Serious: Yes (Hospitalization)
  Sender: FDA-Public Use
  Company Number: FR-INCYTE CORPORATION-2016IN003691

PATIENT
  Age: 77 Year
  Sex: Female

DRUGS (3)
  1. JAKAFI [Suspect]
     Active Substance: RUXOLITINIB
     Indication: MYELOFIBROSIS
     Dosage: 5 MG, BID (2 DF)
     Route: 048
     Dates: start: 20150618, end: 20160517
  2. JAKAFI [Suspect]
     Active Substance: RUXOLITINIB
     Dosage: 10 MG, BID  (2 DF)
     Route: 048
     Dates: start: 20160610
  3. JAKAFI [Suspect]
     Active Substance: RUXOLITINIB
     Indication: SPLENOMEGALY
     Dosage: 10 MG, BID (2 DF)
     Route: 048
     Dates: start: 20160518, end: 20160525

REACTIONS (4)
  - General physical health deterioration [Recovering/Resolving]
  - Oedema peripheral [Recovering/Resolving]
  - Urinary retention [Unknown]
  - Splenomegaly [Recovering/Resolving]

NARRATIVE: CASE EVENT DATE: 20160517
